FAERS Safety Report 9357981 (Version 1)
Quarter: 2013Q2

REPORT INFORMATION
  Report Type: Spontaneous
  Country: US (occurrence: US)
  Receive Date: 20130620
  Receipt Date: 20130620
  Transmission Date: 20140414
  Serious: No
  Sender: FDA-Public Use
  Company Number: US-PFIZER INC-2013167062

PATIENT
  Age: 14 Year
  Sex: Female
  Weight: 78.5 kg

DRUGS (15)
  1. ENBREL [Suspect]
     Indication: JUVENILE IDIOPATHIC ARTHRITIS
     Dosage: 50 MG, QWK
     Route: 058
     Dates: start: 20130509, end: 20130517
  2. METHOTREXATE SODIUM [Suspect]
     Dosage: 22.5 MG, QWK
     Route: 058
     Dates: start: 20121011
  3. SENNA [Concomitant]
     Dosage: UNK
  4. COLACE [Concomitant]
  5. CYMBALTA [Concomitant]
     Dosage: UNK
  6. FLEXERIL [Concomitant]
     Dosage: 5 MG, 1X/DAY
     Route: 048
     Dates: start: 20120131
  7. ADDERALL [Concomitant]
     Dosage: UNK
  8. CATAPRES [Concomitant]
     Dosage: UNK
  9. LACTULOSE [Concomitant]
     Dosage: UNK
  10. VITAMIN D3 [Concomitant]
     Dosage: UNK
  11. FLOVENT [Concomitant]
  12. ALBUTEROL [Concomitant]
     Dosage: UNK
  13. LAMICTAL [Concomitant]
     Dosage: UNK
  14. CALCIUM [Concomitant]
     Dosage: UNK
  15. TYLENOL [Concomitant]

REACTIONS (4)
  - Erythema [Recovered/Resolved]
  - Pruritus [Recovered/Resolved]
  - Dyspnoea [Recovered/Resolved]
  - Chest discomfort [Recovered/Resolved]
